FAERS Safety Report 10172938 (Version 1)
Quarter: 2014Q2

REPORT INFORMATION
  Report Type: Spontaneous
  Country: US (occurrence: None)
  Receive Date: 20140514
  Receipt Date: 20140514
  Transmission Date: 20141212
  Serious: No
  Sender: FDA-Public Use
  Company Number: None

PATIENT
  Age: 74 Year
  Sex: Male
  Weight: 73.94 kg

DRUGS (3)
  1. SIMVASTATIN 40 MG [Suspect]
     Indication: BLOOD CHOLESTEROL
     Route: 048
     Dates: start: 20130227, end: 20131112
  2. AMIODARONE [Concomitant]
  3. AMLODIPINE [Concomitant]

REACTIONS (1)
  - Drug interaction [None]
